FAERS Safety Report 15275986 (Version 4)
Quarter: 2019Q4

REPORT INFORMATION
  Report Type: Report from Study
  Country: CA (occurrence: CA)
  Receive Date: 20180814
  Receipt Date: 20191019
  Transmission Date: 20200122
  Serious: Yes (Other)
  Sender: FDA-Public Use
  Company Number: PHHY2017CA060369

PATIENT
  Age: 75 Year
  Sex: Female

DRUGS (4)
  1. SANDOSTATIN LAR DEPOT [Suspect]
     Active Substance: OCTREOTIDE ACETATE
     Indication: CARCINOID SYNDROME
     Dosage: 30 MG, QMO
     Route: 030
     Dates: start: 20160602, end: 20161031
  2. SANDOSTATIN LAR DEPOT [Suspect]
     Active Substance: OCTREOTIDE ACETATE
     Dosage: 30 MG, QMO
     Route: 065
     Dates: start: 20170424
  3. SANDOSTATIN LAR DEPOT [Suspect]
     Active Substance: OCTREOTIDE ACETATE
     Dosage: 50 MG, Q4W
     Route: 030
  4. AMLODIPIN [Concomitant]
     Active Substance: AMLODIPINE BESYLATE
     Indication: PRODUCT USED FOR UNKNOWN INDICATION
     Dosage: 10 MG, QD
     Dates: start: 201707

REACTIONS (17)
  - Vein disorder [Unknown]
  - Contusion [Unknown]
  - Hypertension [Recovering/Resolving]
  - Feeling abnormal [Unknown]
  - Body temperature decreased [Unknown]
  - Depressed mood [Unknown]
  - Fall [Unknown]
  - Anxiety [Unknown]
  - Psychiatric symptom [Unknown]
  - Fatigue [Unknown]
  - Amnesia [Unknown]
  - Blood pressure systolic increased [Unknown]
  - Influenza [Unknown]
  - Syncope [Unknown]
  - Asthenia [Unknown]
  - Dizziness [Unknown]
  - Blood pressure decreased [Unknown]

NARRATIVE: CASE EVENT DATE: 2017
